FAERS Safety Report 10141659 (Version 1)
Quarter: 2014Q2

REPORT INFORMATION
  Report Type: Report from Study
  Country: CA (occurrence: CA)
  Receive Date: 20140429
  Receipt Date: 20140429
  Transmission Date: 20141212
  Serious: Yes (Other)
  Sender: FDA-Public Use
  Company Number: CA-BRISTOL-MYERS SQUIBB COMPANY-20656104

PATIENT
  Age: 30 Year
  Sex: Female

DRUGS (3)
  1. ORENCIA [Suspect]
     Indication: RHEUMATOID ARTHRITIS
     Dosage: 1DF: 750 UNITS NOS
     Dates: start: 20131101
  2. ARAVA [Concomitant]
  3. PLAQUENIL [Concomitant]

REACTIONS (1)
  - Arthropathy [Not Recovered/Not Resolved]
